FAERS Safety Report 4404587-4 (Version None)
Quarter: 2004Q3

REPORT INFORMATION
  Report Type: 
  Country: None (occurrence: None)
  Receive Date: 20040720
  Receipt Date: 20040709
  Transmission Date: 20050211
  Serious: Yes (Hospitalization)
  Sender: FDA-Public Use
  Company Number: PERI00204002311

PATIENT
  Sex: Male
  Weight: 65 kg

DRUGS (4)
  1. COVERSYL (PERINDOPRIL) [Suspect]
     Indication: ILL-DEFINED DISORDER
     Dosage: 4 MG QD PO
     Route: 048
     Dates: end: 20031218
  2. ZOCOR [Suspect]
     Indication: METABOLIC DISORDER
     Dosage: 80 MG DAILY PO
     Route: 048
     Dates: end: 20031218
  3. ESOMEPRAZOLE MAGNESIUM TRIHYDRATE (ESOMEPRAZOLE MAGNESIUM TRIHYDRATE) [Suspect]
     Indication: ILL-DEFINED DISORDER
     Dosage: 40 MG DAILY PO
     Route: 048
     Dates: end: 20031218
  4. MINIPRESS [Concomitant]

REACTIONS (2)
  - BLOOD CREATINE PHOSPHOKINASE INCREASED [None]
  - ERYTHEMA MULTIFORME [None]
